FAERS Safety Report 19783776 (Version 3)
Quarter: 2021Q4

REPORT INFORMATION
  Report Type: Spontaneous
  Country: FR (occurrence: FR)
  Receive Date: 20210903
  Receipt Date: 20211001
  Transmission Date: 20220304
  Serious: Yes (Other)
  Sender: FDA-Public Use
  Company Number: FR-ORGANON-O2107FRA001917

PATIENT
  Age: 33 Year
  Sex: Female
  Weight: 77 kg

DRUGS (1)
  1. NEXPLANON [Suspect]
     Active Substance: ETONOGESTREL
     Dosage: 1 IMPLANT IN RIGHT ARM (RIGHT HANDED) (3 YEARS AGO)
     Dates: start: 20170915

REACTIONS (6)
  - Complication of device removal [Not Recovered/Not Resolved]
  - General anaesthesia [Unknown]
  - Surgery [Unknown]
  - Device placement issue [Not Recovered/Not Resolved]
  - Complication associated with device [Recovered/Resolved]
  - Incorrect product administration duration [Unknown]

NARRATIVE: CASE EVENT DATE: 20170915
